FAERS Safety Report 23470523 (Version 1)
Quarter: 2024Q1

REPORT INFORMATION
  Report Type: Spontaneous
  Country: US (occurrence: US)
  Receive Date: 20240202
  Receipt Date: 20240202
  Transmission Date: 20240410
  Serious: Yes (Hospitalization)
  Sender: FDA-Public Use
  Company Number: US-GLAXOSMITHKLINE-US2024012231

PATIENT

DRUGS (4)
  1. BENLYSTA [Suspect]
     Active Substance: BELIMUMAB
     Indication: Systemic lupus erythematosus
     Dosage: 200 MG
  2. PAXLOVID [Concomitant]
     Active Substance: NIRMATRELVIR\RITONAVIR
     Indication: COVID-19
     Dosage: UNK
  3. PLAQUENIL [Concomitant]
     Active Substance: HYDROXYCHLOROQUINE SULFATE
     Indication: Systemic lupus erythematosus
     Dosage: 200 MG, BID
  4. GABAPENTIN [Concomitant]
     Active Substance: GABAPENTIN
     Indication: Neuralgia
     Dosage: 300 MG, TID
     Dates: start: 202310

REACTIONS (8)
  - COVID-19 [Recovered/Resolved]
  - SARS-CoV-2 test positive [Recovered/Resolved]
  - Influenza [Recovered/Resolved]
  - Rhinorrhoea [Unknown]
  - Headache [Unknown]
  - Fatigue [Unknown]
  - Anosmia [Unknown]
  - Ageusia [Unknown]

NARRATIVE: CASE EVENT DATE: 20231001
